FAERS Safety Report 16975171 (Version 1)
Quarter: 2019Q4

REPORT INFORMATION
  Report Type: Spontaneous
  Country: US (occurrence: US)
  Receive Date: 20191029
  Receipt Date: 20191029
  Transmission Date: 20200122
  Serious: Yes (Hospitalization)
  Sender: FDA-Public Use
  Company Number: None

PATIENT
  Age: 62 Year
  Sex: Female
  Weight: 85.5 kg

DRUGS (5)
  1. METOPROLOL. [Concomitant]
     Active Substance: METOPROLOL
  2. ELIQUIS [Concomitant]
     Active Substance: APIXABAN
  3. MAGNESIUM [Concomitant]
     Active Substance: MAGNESIUM
  4. ALPRAZOLAM. [Suspect]
     Active Substance: ALPRAZOLAM
     Indication: ANXIETY
     Dosage: ?          QUANTITY:1 TABLET(S);?
     Route: 048
     Dates: start: 20190501, end: 20191029
  5. PROPAFENONE. [Concomitant]
     Active Substance: PROPAFENONE

REACTIONS (4)
  - Abdominal pain [None]
  - Infection [None]
  - Diverticulitis [None]
  - Haematochezia [None]

NARRATIVE: CASE EVENT DATE: 20191028
